FAERS Safety Report 19057301 (Version 6)
Quarter: 2021Q4

REPORT INFORMATION
  Report Type: Report from Study
  Country: US (occurrence: US)
  Receive Date: 20210324
  Receipt Date: 20211222
  Transmission Date: 20220303
  Serious: No
  Sender: FDA-Public Use
  Company Number: NVSC2021US063376

PATIENT
  Sex: Female

DRUGS (3)
  1. COSENTYX [Suspect]
     Active Substance: SECUKINUMAB
     Indication: Psoriasis
     Dosage: 300 MG, QW FOR 5 WEEKS
     Route: 058
     Dates: start: 202102
  2. COSENTYX [Suspect]
     Active Substance: SECUKINUMAB
     Dosage: 300 MG, Q4W
     Route: 058
  3. COSENTYX [Suspect]
     Active Substance: SECUKINUMAB
     Dosage: 300 UNK, QMO
     Route: 065

REACTIONS (4)
  - Injection site haemorrhage [Unknown]
  - Injection site pain [Unknown]
  - Skin discolouration [Unknown]
  - Nail pitting [Unknown]
